FAERS Safety Report 6884683-2 (Version None)
Quarter: 2010Q3

REPORT INFORMATION
  Report Type: 
  Country: None (occurrence: None)
  Receive Date: 20100727
  Receipt Date: 20100719
  Transmission Date: 20110219
  Serious: Yes (Hospitalization)
  Sender: FDA-Public Use
  Company Number: USA/USA/10/0014363

PATIENT
  Age: 60 Year
  Sex: Male
  Weight: 87.4 kg

DRUGS (14)
  1. GLIMEPIRIDE [Suspect]
     Indication: DIABETES MELLITUS
     Dosage: 4 MG, PER ORAL
     Route: 048
     Dates: start: 20100201
  2. PRILOSEC (OMEPRAZOLE) [Concomitant]
  3. METOPROLOL [Concomitant]
  4. LORAZEPAM [Concomitant]
  5. HYDROCHLOROTHIAZIDE [Concomitant]
  6. PLAVIX [Concomitant]
  7. TRICOR (ADENOSINE) [Concomitant]
  8. TRICOR (ADENOSINE) [Concomitant]
  9. NIASPAN [Concomitant]
  10. RAMIPRIL [Concomitant]
  11. ASPIRIN [Concomitant]
  12. SALMON OIL [Concomitant]
  13. CENTRUM VITAMINS [Concomitant]
  14. CO Q10 (UBIDECARENONE [Concomitant]

REACTIONS (1)
  - ARTERIOSCLEROSIS [None]
